FAERS Safety Report 17470054 (Version 1)
Quarter: 2020Q1

REPORT INFORMATION
  Report Type: Spontaneous
  Country: US (occurrence: US)
  Receive Date: 20200227
  Receipt Date: 20200227
  Transmission Date: 20200409
  Serious: Yes (Other)
  Sender: FDA-Public Use
  Company Number: US-BAUSCH-BL-2020-005375

PATIENT
  Sex: Female

DRUGS (5)
  1. PROLENSA [Suspect]
     Active Substance: BROMFENAC SODIUM
     Dosage: ONE DROP IN THE SURGICAL EYE (RIGHT EYE)
     Route: 047
     Dates: start: 20200205
  2. POLYMYXIN B SULFATE AND TRIMETHOPRIM [Suspect]
     Active Substance: POLYMYXIN B SULFATE\TRIMETHOPRIM SULFATE
     Indication: PRODUCT USED FOR UNKNOWN INDICATION
     Route: 047
  3. PREDNISOLONE. [Concomitant]
     Active Substance: PREDNISOLONE
     Indication: PRODUCT USED FOR UNKNOWN INDICATION
  4. VITAMINS [Concomitant]
     Active Substance: VITAMINS
     Indication: PRODUCT USED FOR UNKNOWN INDICATION
  5. PROLENSA [Suspect]
     Active Substance: BROMFENAC SODIUM
     Indication: CATARACT OPERATION
     Dosage: ONE DROP IN THE SURGICAL EYE (LEFT EYE)
     Route: 047
     Dates: start: 20200108, end: 2020

REACTIONS (4)
  - Poor quality product administered [Unknown]
  - Off label use [Unknown]
  - Product colour issue [Unknown]
  - Corneal abrasion [Not Recovered/Not Resolved]

NARRATIVE: CASE EVENT DATE: 20200108
